FAERS Safety Report 9167735 (Version 2)
Quarter: 2013Q2

REPORT INFORMATION
  Report Type: Spontaneous
  Country: US (occurrence: US)
  Receive Date: 20130318
  Receipt Date: 20130426
  Transmission Date: 20140414
  Serious: Yes (Other)
  Sender: FDA-Public Use
  Company Number: PHEH2013US006003

PATIENT
  Sex: Female

DRUGS (6)
  1. TOBI [Suspect]
     Indication: BRONCHIECTASIS
     Dosage: 1 DF, QD
     Dates: end: 201209
  2. SIMVASTIN [Concomitant]
     Indication: BLOOD CHOLESTEROL
     Dosage: UNK UKN, UNK
  3. NEXIUM I.V. [Concomitant]
     Indication: GASTROOESOPHAGEAL REFLUX DISEASE
     Dosage: UNK
  4. LOSARTAN [Concomitant]
     Indication: BLOOD PRESSURE
     Dosage: UNK UKN, UNK
  5. VESICARE [Concomitant]
     Indication: BLADDER DISORDER
     Dosage: UNK
  6. PERFOROMIST [Concomitant]
     Dosage: UNK

REACTIONS (3)
  - Lung infection [Unknown]
  - Bronchiectasis [Unknown]
  - Drug ineffective [Unknown]
